FAERS Safety Report 4579185-2 (Version None)
Quarter: 2005Q1

REPORT INFORMATION
  Report Type: 
  Country: None (occurrence: None)
  Receive Date: 20050208
  Receipt Date: 20050208
  Transmission Date: 20050727
  Serious: Yes (Other)
  Sender: FDA-Public Use
  Company Number: None

PATIENT
  Sex: Male

DRUGS (3)
  1. LOVASTATIN [Suspect]
     Indication: HYPERLIPIDAEMIA
     Dosage: 80 MG   DAILY   ORAL
     Route: 048
     Dates: start: 20041201, end: 20050125
  2. FERROUS SULFATE TAB [Concomitant]
  3. FOLIC ACID [Concomitant]

REACTIONS (1)
  - HEPATIC ENZYME INCREASED [None]
